FAERS Safety Report 6527949-8 (Version None)
Quarter: 2009Q4

REPORT INFORMATION
  Report Type: 
  Country: None (occurrence: None)
  Receive Date: 20091229
  Receipt Date: 20091217
  Transmission Date: 20100525
  Serious: Yes (Other)
  Sender: FDA-Public Use
  Company Number: 2009SP042197

PATIENT
  Age: 17 Year
  Sex: Male

DRUGS (3)
  1. MIRTAZAPINE [Suspect]
     Indication: DRUG USE FOR UNKNOWN INDICATION
     Dosage: 15 MG; HS; PO 30 MG; HS; PO
     Route: 048
     Dates: start: 20091101, end: 20091101
  2. MIRTAZAPINE [Suspect]
     Indication: DRUG USE FOR UNKNOWN INDICATION
     Dosage: 15 MG; HS; PO 30 MG; HS; PO
     Route: 048
     Dates: start: 20091101
  3. SULPIRIDE [Concomitant]

REACTIONS (5)
  - CONVULSION [None]
  - DRUG DOSE OMISSION [None]
  - LOSS OF CONSCIOUSNESS [None]
  - OVERWORK [None]
  - TREMOR [None]
